FAERS Safety Report 5227761-6 (Version None)
Quarter: 2007Q1

REPORT INFORMATION
  Report Type: 
  Country: None (occurrence: None)
  Receive Date: 20070202
  Receipt Date: 20070124
  Transmission Date: 20070707
  Serious: Yes (Hospitalization)
  Sender: FDA-Public Use
  Company Number: GB-MERCK-0701GBR00209

PATIENT
  Sex: Female

DRUGS (1)
  1. INDOCIN [Suspect]
     Route: 048
     Dates: end: 20050618

REACTIONS (2)
  - NEPHROPATHY TOXIC [None]
  - PYELONEPHRITIS ACUTE [None]
